FAERS Safety Report 9298291 (Version 2)
Quarter: 2013Q3

REPORT INFORMATION
  Report Type: Spontaneous
  Country: GR (occurrence: GR)
  Receive Date: 20130520
  Receipt Date: 20130731
  Transmission Date: 20140515
  Serious: Yes (Hospitalization, Other)
  Sender: FDA-Public Use
  Company Number: GR-AMGEN-GRCSP2013034351

PATIENT
  Age: 42 Year
  Sex: Female
  Weight: 60 kg

DRUGS (5)
  1. NPLATE [Suspect]
     Indication: IMMUNE THROMBOCYTOPENIC PURPURA
     Dosage: 4 MG/KG, QWK
     Route: 058
     Dates: start: 20090519, end: 201304
  2. OMEPRAZOLE [Concomitant]
     Dosage: 20 MG, QD
     Route: 042
     Dates: start: 20110507, end: 20110509
  3. VENLAFAXINE [Concomitant]
     Dosage: 150 MG, QD
  4. CLORAZEPATE [Concomitant]
     Dosage: 20 MG, QD
  5. ANTIDEPRESSANTS [Concomitant]

REACTIONS (3)
  - Drug effect decreased [Unknown]
  - Thrombocytopenia [Not Recovered/Not Resolved]
  - Myelodysplastic syndrome [Unknown]
